FAERS Safety Report 12729942 (Version 2)
Quarter: 2016Q3

REPORT INFORMATION
  Report Type: Spontaneous
  Country: BR (occurrence: BR)
  Receive Date: 20160909
  Receipt Date: 20160920
  Transmission Date: 20161109
  Serious: Yes (Other)
  Sender: FDA-Public Use
  Company Number: BR-AMGEN-BRASP2016077453

PATIENT
  Age: 25 Year
  Sex: Male
  Weight: 69 kg

DRUGS (2)
  1. ENBREL [Suspect]
     Active Substance: ETANERCEPT
     Dosage: UNK
     Route: 065
     Dates: start: 2014
  2. ENBREL [Suspect]
     Active Substance: ETANERCEPT
     Indication: ANKYLOSING SPONDYLITIS
     Dosage: 50 MG, ONCE WEEKLY
     Route: 058
     Dates: start: 201411, end: 201512

REACTIONS (8)
  - Arthralgia [Unknown]
  - Neck pain [Unknown]
  - Spinal pain [Unknown]
  - Joint swelling [Unknown]
  - Gait disturbance [Unknown]
  - Urinary tract infection [Unknown]
  - Movement disorder [Unknown]
  - Drug ineffective [Not Recovered/Not Resolved]
